FAERS Safety Report 10089376 (Version 3)
Quarter: 2014Q2

REPORT INFORMATION
  Report Type: Spontaneous
  Country: JP (occurrence: JP)
  Receive Date: 20140421
  Receipt Date: 20140528
  Transmission Date: 20141212
  Serious: Yes (Life-Threatening, Hospitalization, Other)
  Sender: FDA-Public Use
  Company Number: JP-PFIZER INC-2014109681

PATIENT
  Age: 69 Year
  Sex: Male

DRUGS (3)
  1. CHAMPIX [Suspect]
     Dosage: UNK
     Route: 048
     Dates: start: 20140213, end: 201403
  2. NIFEDIPINE [Suspect]
     Dosage: UNK
     Route: 048
  3. AROTINOLOL [Suspect]
     Indication: HYPERURICAEMIA
     Dosage: UNK
     Route: 048

REACTIONS (9)
  - Hepatic function abnormal [Recovering/Resolving]
  - Renal impairment [Recovering/Resolving]
  - Somnolence [Recovering/Resolving]
  - Respiratory failure [Recovering/Resolving]
  - Coma scale [Unknown]
  - Asthenia [Unknown]
  - Hypercapnia [Unknown]
  - Blood pressure abnormal [Unknown]
  - Somnolence [Unknown]
